FAERS Safety Report 7766104-0 (Version None)
Quarter: 2011Q3

REPORT INFORMATION
  Report Type: 
  Country: None (occurrence: None)
  Receive Date: 20110921
  Receipt Date: 20110912
  Transmission Date: 20111222
  Serious: Yes (Hospitalization, Other)
  Sender: FDA-Public Use
  Company Number: US-ASTRAZENECA-2011SE48844

PATIENT
  Age: 56 Year
  Sex: Male

DRUGS (20)
  1. ASCORBIC ACID [Concomitant]
  2. GLUCOSAMINE/CHONDROITIN [Concomitant]
     Dosage: TWO TABLETS DAILY
  3. VANDETANIB [Suspect]
     Route: 048
  4. WELLBUTRIN [Concomitant]
  5. LIDODERM [Concomitant]
     Dosage: ONE PATCH EVERY 12 HOURS
     Route: 062
  6. FISH OIL [Concomitant]
     Dosage: TWO CAPSULES DAILY
  7. PRILOSEC [Suspect]
     Route: 048
  8. VANDETANIB [Suspect]
     Indication: THYROID CANCER
     Route: 048
     Dates: start: 20110812
  9. ALLEGRA D 24 HOUR [Concomitant]
     Dosage: ONE TABLET TWO TIMES A DAY
  10. ZOMETA [Concomitant]
     Dosage: AS PREVIOUSLY
  11. KLONOPIN [Concomitant]
  12. SYNTHROID [Concomitant]
  13. COLACE [Concomitant]
  14. MUCINEX [Concomitant]
     Route: 048
  15. MULTI-VITAMIN [Concomitant]
     Dosage: OE TABLET DAILY
  16. MELATONIN [Concomitant]
     Route: 048
  17. PROZAC [Concomitant]
  18. CITRACAL PLUS D [Concomitant]
     Dosage: TWO TABLETS DAILY
  19. TRAMADOL HCL [Concomitant]
  20. ZONISAMIDE [Concomitant]
     Route: 048

REACTIONS (11)
  - METABOLIC ENCEPHALOPATHY [None]
  - HEPATIC LESION [None]
  - THYROID CANCER [None]
  - SPINAL COLUMN STENOSIS [None]
  - METASTASES TO BONE [None]
  - OSTEOLYSIS [None]
  - DYSPHEMIA [None]
  - GASTROOESOPHAGEAL REFLUX DISEASE [None]
  - MEMORY IMPAIRMENT [None]
  - HAND FRACTURE [None]
  - TRACHEAL STENOSIS [None]
